FAERS Safety Report 5785400-X (Version None)
Quarter: 2008Q2

REPORT INFORMATION
  Report Type: 
  Country: None (occurrence: None)
  Receive Date: 20080605
  Receipt Date: 20080218
  Transmission Date: 20081010
  Serious: No
  Sender: FDA-Public Use
  Company Number: A0710189A

PATIENT

DRUGS (15)
  1. ALLI [Suspect]
     Indication: DRUG USE FOR UNKNOWN INDICATION
  2. FLAXSEED OIL [Concomitant]
  3. GLUCOSAMINE [Concomitant]
  4. CHONDROITIN [Concomitant]
  5. POTASSIUM CHLORIDE [Concomitant]
  6. MAGNESIUM [Concomitant]
  7. LINOLENIC ACID [Concomitant]
  8. MELATONIN [Concomitant]
  9. LEVOTHYROXINE SODIUM [Concomitant]
  10. HYDROCHLORIC ACID [Concomitant]
  11. LEXAPRO [Concomitant]
  12. ASPIRIN [Concomitant]
  13. METHYLSULFONYLMETHANE [Concomitant]
  14. CO Q10 [Concomitant]
  15. SUPPLEMENT [Concomitant]

REACTIONS (2)
  - FEELING ABNORMAL [None]
  - FEELING JITTERY [None]
